FAERS Safety Report 9629907 (Version 2)
Quarter: 2013Q4

REPORT INFORMATION
  Report Type: Spontaneous
  Country: US (occurrence: US)
  Receive Date: 20131017
  Receipt Date: 20131017
  Transmission Date: 20140711
  Serious: Yes (Hospitalization)
  Sender: FDA-Public Use
  Company Number: US-B.I. PHARMACEUTICALS,INC./RIDGEFIELD-2013-BI-13170BP

PATIENT
  Age: 81 Year
  Sex: Female
  Weight: 83.91 kg

DRUGS (10)
  1. PRADAXA [Suspect]
     Indication: ANTICOAGULANT THERAPY
     Dosage: 150 MG
     Route: 048
     Dates: start: 20110719
  2. COUMADIN [Suspect]
     Dosage: 5 MG
     Route: 048
  3. ZYVOX [Concomitant]
     Dosage: 1200 MG
     Route: 048
  4. VITAMIN D [Concomitant]
     Route: 048
  5. ARICEPT [Concomitant]
     Dosage: 5 MG
     Route: 048
  6. ZETIA [Concomitant]
     Dosage: 10 MG
     Route: 048
  7. CRESTOR [Concomitant]
     Dosage: 5 MG
     Route: 048
  8. ARMOUR THYROID [Concomitant]
     Dosage: 60 MCG
     Route: 048
  9. METFORMIN [Concomitant]
     Dosage: 500 MG
     Route: 048
  10. PROCARDIA [Concomitant]
     Dosage: 90 MG
     Route: 048

REACTIONS (3)
  - Lower gastrointestinal haemorrhage [Unknown]
  - Hypercoagulation [Recovered/Resolved]
  - Haemorrhagic anaemia [Unknown]
